FAERS Safety Report 23182710 (Version 1)
Quarter: 2023Q4

REPORT INFORMATION
  Report Type: Spontaneous
  Country: CA (occurrence: CA)
  Receive Date: 20231114
  Receipt Date: 20231114
  Transmission Date: 20240109
  Serious: Yes (Hospitalization)
  Sender: FDA-Public Use
  Company Number: CA-PFIZER INC-202300361653

PATIENT
  Age: 84 Year
  Sex: Male

DRUGS (26)
  1. AZITHROMYCIN [Suspect]
     Active Substance: AZITHROMYCIN
     Indication: Pneumonia
     Dosage: 250 MG, 1X/DAY
     Route: 048
  2. AMOXICILLIN TRIHYDRATE [Suspect]
     Active Substance: AMOXICILLIN
     Indication: Urinary tract infection
     Dosage: 500 MG, 3X/DAY
     Route: 048
  3. CEFAZOLIN [Suspect]
     Active Substance: CEFAZOLIN
     Indication: Prophylaxis
     Dosage: 2 G, 3X/DAY (1 EVERY 8 HOURS)
     Route: 042
  4. CEFTRIAXONE [Suspect]
     Active Substance: CEFTRIAXONE\CEFTRIAXONE SODIUM
     Indication: Pneumonia
     Dosage: 1 G, 1X/DAY
     Route: 042
  5. FOSFOMYCIN TROMETHAMINE [Suspect]
     Active Substance: FOSFOMYCIN TROMETHAMINE
     Indication: Urinary tract infection
     Dosage: 3 G, SINGLE
     Route: 048
  6. AMOXICILLIN\CLAVULANATE POTASSIUM [Suspect]
     Active Substance: AMOXICILLIN\CLAVULANATE POTASSIUM
     Indication: Pneumonia
     Dosage: 1 DF, 2X/DAY
     Route: 048
  7. ACETAMINOPHEN [Concomitant]
     Active Substance: ACETAMINOPHEN
  8. AMLODIPINE [Concomitant]
     Active Substance: AMLODIPINE BESYLATE
     Route: 065
  9. ARIPIPRAZOLE [Concomitant]
     Active Substance: ARIPIPRAZOLE
  10. BISOPROLOL [Concomitant]
     Active Substance: BISOPROLOL\BISOPROLOL FUMARATE
     Route: 065
  11. DUTASTERIDE [Concomitant]
     Active Substance: DUTASTERIDE
  12. HYDROMORPHONE [Concomitant]
     Active Substance: HYDROMORPHONE
  13. LACTULOSE [Concomitant]
     Active Substance: LACTULOSE
  14. MELATONIN [Concomitant]
     Active Substance: MELATONIN
  15. MYRBETRIQ [Concomitant]
     Active Substance: MIRABEGRON
  16. PANTOPRAZOLE [Concomitant]
     Active Substance: PANTOPRAZOLE
  17. PEG 3350 [Concomitant]
     Active Substance: POLYETHYLENE GLYCOL 3350
  18. RAMIPRIL [Concomitant]
     Active Substance: RAMIPRIL
     Route: 065
  19. RIVAROXABAN [Concomitant]
     Active Substance: RIVAROXABAN
     Route: 065
  20. ROSUVASTATIN [Concomitant]
     Active Substance: ROSUVASTATIN
     Route: 065
  21. SENNASID [SENNOSIDE A+B] [Concomitant]
  22. TAMSULOSIN [Concomitant]
     Active Substance: TAMSULOSIN
  23. TEMAZEPAM [Concomitant]
     Active Substance: TEMAZEPAM
  24. CYANOCOBALAMIN [Concomitant]
     Active Substance: CYANOCOBALAMIN
  25. VITAMIN D NOS [Concomitant]
     Active Substance: VITAMIN D NOS
  26. ZOPICLONE [Concomitant]
     Active Substance: ZOPICLONE

REACTIONS (1)
  - Clostridium test positive [Recovered/Resolved]
